FAERS Safety Report 15782104 (Version 2)
Quarter: 2019Q1

REPORT INFORMATION
  Report Type: Report from Study
  Country: US (occurrence: US)
  Receive Date: 20190102
  Receipt Date: 20190207
  Transmission Date: 20190417
  Serious: Yes (Other)
  Sender: FDA-Public Use
  Company Number: US-EISAI MEDICAL RESEARCH-EC-2018-046401

PATIENT
  Age: 85 Year
  Sex: Male
  Weight: 67.1 kg

DRUGS (24)
  1. LENVIMA [Suspect]
     Active Substance: LENVATINIB
     Route: 048
     Dates: start: 2018, end: 201812
  2. METFORMIN [Concomitant]
     Active Substance: METFORMIN HYDROCHLORIDE
  3. GLIMEPIRIDE. [Concomitant]
     Active Substance: GLIMEPIRIDE
  4. BENEFIBER [Concomitant]
     Active Substance: STARCH, WHEAT
  5. CIPROFLOXACIN. [Concomitant]
     Active Substance: CIPROFLOXACIN
  6. DICYCLOMINE [Concomitant]
     Active Substance: DICYCLOMINE HYDROCHLORIDE
  7. OXYCODONE [Concomitant]
     Active Substance: OXYCODONE
  8. SENNA [Concomitant]
     Active Substance: SENNA LEAF\SENNOSIDES\SENNOSIDES A AND B
  9. EXCEDRIN [Concomitant]
     Active Substance: ACETAMINOPHEN\ASPIRIN\CAFFEINE
  10. TAMSULOSIN [Concomitant]
     Active Substance: TAMSULOSIN
  11. PROCTOZONE [Concomitant]
     Active Substance: HYDROCORTISONE
  12. ASPIRIN. [Concomitant]
     Active Substance: ASPIRIN
  13. SULFAMETHOXAZOLE-TRIME [Concomitant]
  14. ONDANSETRON ODT [Concomitant]
     Active Substance: ONDANSETRON
  15. LENVIMA [Suspect]
     Active Substance: LENVATINIB
     Indication: HEPATIC CANCER
     Route: 048
     Dates: start: 201810, end: 201810
  16. LISINOPRIL. [Concomitant]
     Active Substance: LISINOPRIL
  17. SPIRONOLACTONE. [Concomitant]
     Active Substance: SPIRONOLACTONE
  18. GAS-X [Concomitant]
     Active Substance: DIMETHICONE
  19. STOOL SOFTENER (DOCUSATE) [Concomitant]
     Active Substance: DOCUSATE
  20. NADOLOL. [Concomitant]
     Active Substance: NADOLOL
  21. VITAMIN D3 [Concomitant]
     Active Substance: CHOLECALCIFEROL
  22. ROSUVASTATIN. [Concomitant]
     Active Substance: ROSUVASTATIN
  23. DOK [Concomitant]
     Active Substance: DOCUSATE SODIUM
  24. LEVOTHYROXINE SODIUM. [Concomitant]
     Active Substance: LEVOTHYROXINE SODIUM

REACTIONS (14)
  - Asthenia [Unknown]
  - Muscle spasms [Unknown]
  - Blood pressure increased [Not Recovered/Not Resolved]
  - Back pain [Unknown]
  - Intra-abdominal fluid collection [Unknown]
  - Decreased appetite [Not Recovered/Not Resolved]
  - Fatigue [Unknown]
  - Abdominal distension [Not Recovered/Not Resolved]
  - White blood cell count decreased [Not Recovered/Not Resolved]
  - Abdominal pain upper [Unknown]
  - Pulmonary embolism [Unknown]
  - Epistaxis [Unknown]
  - Red blood cell count decreased [Not Recovered/Not Resolved]
  - Diarrhoea [Unknown]

NARRATIVE: CASE EVENT DATE: 2018
